FAERS Safety Report 5130542-5 (Version None)
Quarter: 2006Q4

REPORT INFORMATION
  Report Type: 
  Country: None (occurrence: None)
  Receive Date: 20061017
  Receipt Date: 20061017
  Transmission Date: 20070319
  Serious: Yes (Hospitalization, Other)
  Sender: FDA-Public Use
  Company Number: None

PATIENT
  Age: 79 Year
  Sex: Female

DRUGS (6)
  1. SEROQUEL [Suspect]
     Indication: PSYCHOTIC DISORDER
     Dosage: 25 MG QD PO
     Route: 048
     Dates: start: 20060326, end: 20060328
  2. SINEMET [Concomitant]
  3. LEXAPRO [Concomitant]
  4. INDERAL [Concomitant]
  5. ZOCOR [Concomitant]
  6. PREVACID [Concomitant]

REACTIONS (2)
  - CONFUSIONAL STATE [None]
  - MOVEMENT DISORDER [None]
